FAERS Safety Report 25801814 (Version 1)
Quarter: 2025Q3

REPORT INFORMATION
  Report Type: Spontaneous
  Country: US (occurrence: US)
  Receive Date: 20250915
  Receipt Date: 20250915
  Transmission Date: 20251020
  Serious: No
  Sender: AUROBINDO
  Company Number: US-AUROBINDO-AUR-APL-2025-026787

PATIENT
  Sex: Female

DRUGS (1)
  1. ALPRAZOLAM [Suspect]
     Active Substance: ALPRAZOLAM
     Indication: Product used for unknown indication
     Dosage: 90 MILLIGRAM, FOUR TIMES/DAY
     Route: 065

REACTIONS (5)
  - Lip swelling [Unknown]
  - Headache [Unknown]
  - Vomiting [Unknown]
  - Emotional distress [Unknown]
  - Nausea [Unknown]
